FAERS Safety Report 5241046-3 (Version None)
Quarter: 2007Q1

REPORT INFORMATION
  Report Type: 
  Country: None (occurrence: None)
  Receive Date: 20070214
  Receipt Date: 20070214
  Transmission Date: 20070707
  Serious: Yes (Other)
  Sender: FDA-Public Use
  Company Number: None

PATIENT
  Sex: Female
  Weight: 49.5782 kg

DRUGS (16)
  1. VECTIBIX [Suspect]
     Indication: CHEMOTHERAPY
     Dosage: 200MG OVER 1 HOUR IVPB
     Route: 050
     Dates: start: 20061025
  2. VECTIBIX [Suspect]
     Indication: COLON CANCER
     Dosage: 200MG OVER 1 HOUR IVPB
     Route: 050
     Dates: start: 20061025
  3. VECTIBIX [Suspect]
     Indication: CHEMOTHERAPY
     Dosage: 200MG OVER 1 HOUR IVPB
     Route: 050
     Dates: start: 20061109
  4. VECTIBIX [Suspect]
     Indication: COLON CANCER
     Dosage: 200MG OVER 1 HOUR IVPB
     Route: 050
     Dates: start: 20061109
  5. VECTIBIX [Suspect]
     Indication: CHEMOTHERAPY
     Dosage: 200MG OVER 1 HOUR IVPB
     Route: 050
     Dates: start: 20061127
  6. VECTIBIX [Suspect]
     Indication: COLON CANCER
     Dosage: 200MG OVER 1 HOUR IVPB
     Route: 050
     Dates: start: 20061127
  7. VECTIBIX [Suspect]
     Indication: CHEMOTHERAPY
     Dosage: 200MG OVER 1 HOUR IVPB
     Route: 050
     Dates: start: 20061211
  8. VECTIBIX [Suspect]
     Indication: COLON CANCER
     Dosage: 200MG OVER 1 HOUR IVPB
     Route: 050
     Dates: start: 20061211
  9. VECTIBIX [Suspect]
     Indication: CHEMOTHERAPY
     Dosage: 200MG OVER 1 HOUR IVPB
     Route: 050
     Dates: start: 20061227
  10. VECTIBIX [Suspect]
     Indication: COLON CANCER
     Dosage: 200MG OVER 1 HOUR IVPB
     Route: 050
     Dates: start: 20061227
  11. VECTIBIX [Suspect]
     Indication: CHEMOTHERAPY
     Dosage: 200MG OVER 1 HOUR IVPB
     Route: 050
     Dates: start: 20070110
  12. VECTIBIX [Suspect]
     Indication: COLON CANCER
     Dosage: 200MG OVER 1 HOUR IVPB
     Route: 050
     Dates: start: 20070110
  13. VECTIBIX [Suspect]
     Indication: CHEMOTHERAPY
     Dosage: 200MG OVER 1 HOUR IVPB
     Route: 050
     Dates: start: 20070125
  14. VECTIBIX [Suspect]
     Indication: COLON CANCER
     Dosage: 200MG OVER 1 HOUR IVPB
     Route: 050
     Dates: start: 20070125
  15. VECTIBIX [Suspect]
  16. VECTIBIX [Suspect]

REACTIONS (4)
  - ORAL PAIN [None]
  - STOMATITIS [None]
  - THROAT TIGHTNESS [None]
  - URTICARIA [None]
